FAERS Safety Report 6042400-2 (Version None)
Quarter: 2009Q1

REPORT INFORMATION
  Report Type: 
  Country: None (occurrence: None)
  Receive Date: 20090116
  Receipt Date: 20090106
  Transmission Date: 20090719
  Serious: Yes (Hospitalization, Other)
  Sender: FDA-Public Use
  Company Number: US-PFIZER INC-2009152418

PATIENT
  Sex: Male

DRUGS (2)
  1. LYRICA [Suspect]
     Indication: TRIGEMINAL NEURALGIA
     Dosage: UNK
  2. OXYCONTIN [Suspect]
     Indication: TRIGEMINAL NEURALGIA

REACTIONS (3)
  - DRUG INEFFECTIVE [None]
  - MALAISE [None]
  - PNEUMONIA [None]
